FAERS Safety Report 4762291-7 (Version None)
Quarter: 2005Q3

REPORT INFORMATION
  Report Type: 
  Country: None (occurrence: None)
  Receive Date: 20050907
  Receipt Date: 20050825
  Transmission Date: 20060218
  Serious: Yes (Hospitalization)
  Sender: FDA-Public Use
  Company Number: FR-BOEHRINGER INGELHEIM PHARMACEUTICALS, INC.-2005-FF-00593FF

PATIENT
  Age: 71 Year
  Sex: Female

DRUGS (15)
  1. MOBIC [Suspect]
     Route: 048
     Dates: start: 20050707, end: 20050716
  2. AMODEX [Concomitant]
     Route: 048
     Dates: start: 20050713, end: 20050716
  3. AMLOR [Concomitant]
  4. FOZITEC [Concomitant]
  5. EURELIX [Concomitant]
  6. PLAVIX [Concomitant]
  7. DAFLON [Concomitant]
  8. PROTHIADEN [Concomitant]
  9. LORAZEPAM [Concomitant]
  10. PERIDYS [Concomitant]
  11. TAGAMET [Concomitant]
  12. PHOSPHALUGEL [Concomitant]
  13. VEXOL [Concomitant]
  14. VITAMIN A [Concomitant]
  15. TIMOPTIC [Concomitant]

REACTIONS (1)
  - VASCULAR PURPURA [None]
